FAERS Safety Report 14539158 (Version 1)
Quarter: 2018Q1

REPORT INFORMATION
  Report Type: Report from Study
  Country: US (occurrence: US)
  Receive Date: 20180216
  Receipt Date: 20180216
  Transmission Date: 20180509
  Serious: No
  Sender: FDA-Public Use
  Company Number: PHEH2018US005614

PATIENT
  Sex: Male

DRUGS (1)
  1. COSENTYX [Suspect]
     Active Substance: SECUKINUMAB
     Indication: PRODUCT USED FOR UNKNOWN INDICATION
     Route: 058

REACTIONS (8)
  - Pain in extremity [Unknown]
  - Dry skin [Unknown]
  - Skin exfoliation [Unknown]
  - Injury [Unknown]
  - Skin fissures [Unknown]
  - Myalgia [Unknown]
  - Product storage error [Unknown]
  - Muscle strain [Unknown]
